FAERS Safety Report 21308766 (Version 1)
Quarter: 2022Q3

REPORT INFORMATION
  Report Type: Spontaneous
  Country: US (occurrence: US)
  Receive Date: 20220908
  Receipt Date: 20220908
  Transmission Date: 20221026
  Serious: Yes (Life-Threatening, Hospitalization)
  Sender: FDA-Public Use
  Company Number: US-MYLANLABS-2022M1092460

PATIENT
  Age: 58 Year
  Sex: Male

DRUGS (3)
  1. LORAZEPAM [Suspect]
     Active Substance: LORAZEPAM
     Indication: Mania
     Dosage: 2 MILLIGRAM
     Route: 042
  2. HALOPERIDOL [Suspect]
     Active Substance: HALOPERIDOL
     Indication: Mania
     Dosage: 10 MILLIGRAM
     Route: 030
  3. HERBALS [Suspect]
     Active Substance: HERBALS
     Indication: Exercise adequate
     Dosage: UNK (3 TIMES THE RECOMMENDED AMOUNT)
     Route: 065

REACTIONS (1)
  - Drug ineffective [Unknown]
